FAERS Safety Report 22362116 (Version 1)
Quarter: 2023Q2

REPORT INFORMATION
  Report Type: Spontaneous
  Country: ES (occurrence: ES)
  Receive Date: 20230524
  Receipt Date: 20230524
  Transmission Date: 20230721
  Serious: Yes (Other)
  Sender: FDA-Public Use
  Company Number: None

PATIENT
  Age: 50 Year
  Sex: Male

DRUGS (1)
  1. LANSOPRAZOLE [Suspect]
     Active Substance: LANSOPRAZOLE
     Indication: Gastrooesophageal reflux disease
     Dosage: 30 MILLIGRAM, QD, 28 TABLETS
     Route: 048
     Dates: start: 20230403, end: 20230405

REACTIONS (1)
  - Aphthous ulcer [Recovering/Resolving]

NARRATIVE: CASE EVENT DATE: 20230405
